FAERS Safety Report 9364459 (Version 1)
Quarter: 2013Q2

REPORT INFORMATION
  Report Type: Spontaneous
  Country: GB (occurrence: None)
  Receive Date: 20130619
  Receipt Date: 20130619
  Transmission Date: 20140414
  Serious: Yes (Other)
  Sender: FDA-Public Use
  Company Number: GER/UKI/13/0030019

PATIENT
  Age: 75 Year
  Sex: Male
  Weight: 79 kg

DRUGS (6)
  1. ATORVASTATIN (ATORVASTATIN) [Suspect]
     Indication: ACUTE MYOCARDIAL INFARCTION
     Route: 048
     Dates: start: 20121019, end: 20130530
  2. TICAGRELOR [Suspect]
     Indication: ACUTE MYOCARDIAL INFARCTION
     Route: 048
     Dates: start: 20121019, end: 20130530
  3. ASPIRIN (ACETYLSALICYLIC ACID0 [Concomitant]
  4. BISOPROLOL (BISOPROLOL) [Concomitant]
  5. RAMIPRIL (RAMIPRIL) [Concomitant]
  6. ZOTON (LANSOPRAZOLE) [Concomitant]

REACTIONS (1)
  - Abdominal pain upper [None]
